FAERS Safety Report 17414889 (Version 1)
Quarter: 2020Q1

REPORT INFORMATION
  Report Type: Report from Study
  Country: FR (occurrence: FR)
  Receive Date: 20200213
  Receipt Date: 20200213
  Transmission Date: 20200409
  Serious: Yes (Hospitalization)
  Sender: FDA-Public Use
  Company Number: FR-PFIZER INC-2020048257

PATIENT
  Age: 76 Year
  Sex: Male
  Weight: 70 kg

DRUGS (12)
  1. CYTARABINE. [Suspect]
     Active Substance: CYTARABINE
     Indication: ACUTE MYELOID LEUKAEMIA
     Dosage: 200 MG/M2, CYCLIC DAILY FROM D1 TO D7 (INDUCTION)
     Dates: start: 20180509, end: 20180515
  2. ZARZIO [Concomitant]
     Active Substance: FILGRASTIM
     Dosage: 48 MILLION IU, DAILY
     Route: 058
  3. CASPOFUNGINE [Concomitant]
     Active Substance: CASPOFUNGIN
     Dosage: 50 MG, DAILY
  4. MYLOTARG [Suspect]
     Active Substance: GEMTUZUMAB OZOGAMICIN
     Indication: ACUTE MYELOID LEUKAEMIA
     Dosage: 5 MG, CYCLIC DAILY FROM D1 AND D4
     Dates: start: 20180509, end: 20180512
  5. ZARZIO [Concomitant]
     Active Substance: FILGRASTIM
     Dosage: 30+48 IU ON D8
     Dates: start: 20180516
  6. PANTOPRAZOLE [Concomitant]
     Active Substance: PANTOPRAZOLE
     Dosage: 40 MG, /12H
  7. TRIMEBUTINE [Concomitant]
     Active Substance: TRIMEBUTINE
     Dosage: 300 MG, DAILY
  8. VANCOMYCIN [Concomitant]
     Active Substance: VANCOMYCIN
     Dosage: 2.5 G, DAILY
  9. CONTRAMAL [Concomitant]
     Active Substance: TRAMADOL HYDROCHLORIDE
     Dosage: 300 MG, DAILY
  10. NICOPATCH [Concomitant]
     Active Substance: NICOTINE
     Dosage: 7 UG, DAILY
  11. MEROPENEM. [Concomitant]
     Active Substance: MEROPENEM
     Dosage: 1 G, 3X/DAY
  12. PHLOROGLUCINOL [Concomitant]
     Active Substance: PHLOROGLUCINOL
     Dosage: 240 MG, DAILY

REACTIONS (3)
  - Enteritis [Recovered/Resolved with Sequelae]
  - Gastrointestinal obstruction [Recovered/Resolved with Sequelae]
  - Neutropenic colitis [Recovered/Resolved with Sequelae]

NARRATIVE: CASE EVENT DATE: 20180514
